FAERS Safety Report 11428175 (Version 1)
Quarter: 2015Q3

REPORT INFORMATION
  Report Type: Report from Study
  Country: US (occurrence: US)
  Receive Date: 20150828
  Receipt Date: 20150828
  Transmission Date: 20151125
  Serious: No
  Sender: FDA-Public Use
  Company Number: PHEH2013US020810

PATIENT
  Age: 61 Year
  Sex: Female
  Weight: 54 kg

DRUGS (11)
  1. SERTRALINE [Concomitant]
     Active Substance: SERTRALINE HYDROCHLORIDE
     Indication: DEPRESSION
     Dosage: 50 MG, DAILY
     Route: 048
  2. SIMVASTATIN. [Concomitant]
     Active Substance: SIMVASTATIN
     Indication: HYPERCHOLESTEROLAEMIA
     Dosage: 20 MG, UNK
     Route: 048
  3. MODAFINIL. [Concomitant]
     Active Substance: MODAFINIL
     Indication: FATIGUE
     Route: 048
  4. MULTI-VIT [Concomitant]
     Active Substance: VITAMINS
     Indication: PRODUCT USED FOR UNKNOWN INDICATION
     Route: 065
  5. ZOLOFT [Concomitant]
     Active Substance: SERTRALINE HYDROCHLORIDE
     Indication: PRODUCT USED FOR UNKNOWN INDICATION
  6. MIDRIN [Concomitant]
     Active Substance: ACETAMINOPHEN\DICHLORALPHENAZONE\ISOMETHEPTENE
     Indication: MIGRAINE
     Route: 048
  7. GILENYA [Suspect]
     Active Substance: FINGOLIMOD HYDROCHLORIDE
     Indication: MULTIPLE SCLEROSIS
     Dosage: 0.5 MG, QD
     Route: 048
     Dates: start: 20110304, end: 201306
  8. AMPYRA [Suspect]
     Active Substance: DALFAMPRIDINE
     Indication: PRODUCT USED FOR UNKNOWN INDICATION
     Route: 065
  9. VITAMIN B12 [Concomitant]
     Active Substance: CYANOCOBALAMIN
  10. FISH OIL [Concomitant]
     Active Substance: FISH OIL
     Indication: PRODUCT USED FOR UNKNOWN INDICATION
     Route: 065
  11. ASPIRIN. [Concomitant]
     Active Substance: ASPIRIN
     Indication: PRODUCT USED FOR UNKNOWN INDICATION
     Route: 065

REACTIONS (3)
  - Leukopenia [Recovered/Resolved]
  - White blood cell count decreased [Unknown]
  - Neutropenia [Unknown]

NARRATIVE: CASE EVENT DATE: 20120411
